FAERS Safety Report 4910586-6 (Version None)
Quarter: 2006Q1

REPORT INFORMATION
  Report Type: 
  Country: None (occurrence: None)
  Receive Date: 20060210
  Receipt Date: 20060210
  Transmission Date: 20060701
  Serious: Yes (Hospitalization)
  Sender: FDA-Public Use
  Company Number: None

PATIENT
  Age: 54 Year
  Sex: Male
  Weight: 65.7716 kg

DRUGS (5)
  1. CISPLATIN [Suspect]
     Indication: NEOPLASM MALIGNANT
     Dosage: 100 MG/M2 = 190 MG
     Dates: start: 20051130
  2. FLUOROURACIL [Concomitant]
  3. NS [Concomitant]
  4. NS + K20 +  MGSO4 [Concomitant]
  5. MANNITOL [Concomitant]

REACTIONS (2)
  - RENAL TUBULAR NECROSIS [None]
  - TUMOUR LYSIS SYNDROME [None]
